FAERS Safety Report 7769693-5 (Version None)
Quarter: 2011Q3

REPORT INFORMATION
  Report Type: 
  Country: None (occurrence: None)
  Receive Date: 20110922
  Receipt Date: 20100115
  Transmission Date: 20111222
  Serious: No
  Sender: FDA-Public Use
  Company Number: US-ASTRAZENECA-2009SE19747

PATIENT
  Age: 35 Year
  Sex: Female
  Weight: 104.3 kg

DRUGS (16)
  1. HALDOL [Concomitant]
  2. ZYPREXA [Concomitant]
  3. RISPERDAL [Concomitant]
     Dates: start: 19900101
  4. SEROQUEL [Suspect]
     Indication: PSYCHOTIC DISORDER
     Route: 048
     Dates: start: 20000101
  5. STELAZINE [Concomitant]
     Dates: start: 19920101
  6. SEROQUEL [Suspect]
     Indication: DISSOCIATIVE DISORDER
     Route: 048
     Dates: start: 20000101
  7. SEROQUEL [Suspect]
     Route: 048
     Dates: start: 20080219
  8. THORAZINE [Concomitant]
     Dates: start: 19920101
  9. SEROQUEL [Suspect]
     Route: 048
     Dates: start: 20080219
  10. ABILIFY [Concomitant]
  11. TRAZODONE HYDROCHLORIDE [Concomitant]
  12. CITALOPRAM HYDROBROMIDE [Concomitant]
     Dates: start: 20080219
  13. ZOCOR [Concomitant]
     Dates: start: 20080501
  14. SEROQUEL [Suspect]
     Route: 048
     Dates: start: 20080219
  15. TOPAMAX [Concomitant]
     Dates: start: 20080219
  16. SEROQUEL [Suspect]
     Indication: POST-TRAUMATIC STRESS DISORDER
     Route: 048
     Dates: start: 20000101

REACTIONS (6)
  - DYSLIPIDAEMIA [None]
  - OBESITY [None]
  - TYPE 2 DIABETES MELLITUS [None]
  - BLOOD CHOLESTEROL INCREASED [None]
  - HYPERLIPIDAEMIA [None]
  - GLUCOSE TOLERANCE IMPAIRED [None]
